FAERS Safety Report 24400335 (Version 4)
Quarter: 2025Q3

REPORT INFORMATION
  Report Type: Spontaneous
  Country: EU (occurrence: EU)
  Receive Date: 20241005
  Receipt Date: 20250726
  Transmission Date: 20251021
  Serious: Yes (Other)
  Sender: IPSEN BIOPHARMACEUTICALS, INC.
  Company Number: EU-IPSEN Group, Research and Development-2024-19781

PATIENT
  Age: 29 Year
  Sex: Male

DRUGS (4)
  1. ODEVIXIBAT [Suspect]
     Active Substance: ODEVIXIBAT
     Indication: Progressive familial intrahepatic cholestasis
  2. ODEVIXIBAT [Suspect]
     Active Substance: ODEVIXIBAT
  3. ODEVIXIBAT [Suspect]
     Active Substance: ODEVIXIBAT
  4. URSODIOL [Concomitant]
     Active Substance: URSODIOL

REACTIONS (9)
  - Cholestasis [Recovered/Resolved]
  - Diarrhoea [Unknown]
  - Abdominal pain [Unknown]
  - Pruritus [Recovered/Resolved]
  - Sleep disorder [Recovered/Resolved]
  - Bile acids increased [Recovered/Resolved]
  - Alanine aminotransferase increased [Recovered/Resolved]
  - Impaired work ability [Unknown]
  - Inappropriate schedule of product administration [Unknown]
